FAERS Safety Report 21950342 (Version 1)
Quarter: 2023Q1

REPORT INFORMATION
  Report Type: Spontaneous
  Country: US (occurrence: US)
  Receive Date: 20230203
  Receipt Date: 20230203
  Transmission Date: 20230418
  Serious: No
  Sender: FDA-Public Use
  Company Number: US-ORPHANEU-2019006074

PATIENT

DRUGS (1)
  1. CYSTADANE [Suspect]
     Active Substance: BETAINE
     Indication: Product used for unknown indication
     Dosage: 11 SCOOPS PER DAY((4 IN THE MORNING 3 IN AFTERNOON AND 4 IN THE EVENING)

REACTIONS (3)
  - Diarrhoea [Unknown]
  - Constipation [Unknown]
  - Product use issue [Recovered/Resolved]
